FAERS Safety Report 14245812 (Version 2)
Quarter: 2017Q4

REPORT INFORMATION
  Report Type: Spontaneous
  Country: US (occurrence: US)
  Receive Date: 20171204
  Receipt Date: 20171204
  Transmission Date: 20180321
  Serious: Yes (Disabling, Other)
  Sender: FDA-Public Use
  Company Number: US-SUN PHARMACEUTICAL INDUSTRIES LTD-2017SUN00401

PATIENT
  Sex: Female

DRUGS (1)
  1. TECHNETIUM TC-99M SULFUR COLLOID KIT [Suspect]
     Active Substance: TECHNETIUM TC-99M SULFUR COLLOID
     Indication: LYMPHATIC MAPPING
     Dosage: UNK, NDC 45567-0030-1
     Route: 065
     Dates: start: 20150928, end: 20150928

REACTIONS (6)
  - Nerve injury [Unknown]
  - Pain [Unknown]
  - Movement disorder [Unknown]
  - Lymphoedema [Unknown]
  - Disability [Unknown]
  - Asthenia [Unknown]

NARRATIVE: CASE EVENT DATE: 20150928
